FAERS Safety Report 5310600-2 (Version None)
Quarter: 2007Q1

REPORT INFORMATION
  Report Type: 
  Country: None (occurrence: None)
  Receive Date: 20070201
  Receipt Date: 20061106
  Transmission Date: 20070707
  Serious: No
  Sender: FDA-Public Use
  Company Number: 258684

PATIENT
  Age: 72 Year
  Sex: Male
  Weight: 98 kg

DRUGS (2)
  1. LEVEMIR [Suspect]
     Indication: DIABETES MELLITUS NON-INSULIN-DEPENDENT
     Dosage: 53 IU, QD, SUBCUTANEOUS
     Route: 058
  2. STARLIX [Concomitant]

REACTIONS (1)
  - BLOOD GLUCOSE INCREASED [None]
